FAERS Safety Report 23672353 (Version 2)
Quarter: 2024Q2

REPORT INFORMATION
  Report Type: Report from Study
  Country: GB (occurrence: GB)
  Receive Date: 20240326
  Receipt Date: 20240402
  Transmission Date: 20240716
  Serious: Yes (Death)
  Sender: FDA-Public Use
  Company Number: GB-CELLTRION INC.-2023GB014796

PATIENT

DRUGS (30)
  1. BEVACIZUMAB [Suspect]
     Active Substance: BEVACIZUMAB
     Indication: Hepatocellular carcinoma
     Dosage: 1200 MG
     Route: 065
     Dates: start: 20230111
  2. ATEZOLIZUMAB [Suspect]
     Active Substance: ATEZOLIZUMAB
     Indication: Hepatocellular carcinoma
     Dosage: 1200 MG
     Route: 042
     Dates: start: 20230111
  3. AMOXICILLIN [Concomitant]
     Active Substance: AMOXICILLIN
  4. FORMOTEROL [Concomitant]
     Active Substance: FORMOTEROL
     Dosage: EVERY 0.5 A DAY (STRENGTH: 200 MCG + 6 MCG;)
     Dates: start: 1993
  5. CANDESARTAN [Concomitant]
     Active Substance: CANDESARTAN
     Dosage: 16 MG, EVERY 1 DAY
     Dates: start: 20230118, end: 20230617
  6. CANDESARTAN [Concomitant]
     Active Substance: CANDESARTAN
     Dosage: UNK, QD
     Dates: start: 20230705, end: 20240307
  7. CARVEDILOL [Concomitant]
     Active Substance: CARVEDILOL
     Dosage: EVERY 0.5 DAY
     Dates: start: 20211124
  8. HYDROCORTISONE [Concomitant]
     Active Substance: HYDROCORTISONE
     Dosage: 10 MG AT AM, 5 MG AT 12 PM, 5 MG AT 5 PM ONCE A DAY
     Route: 048
     Dates: start: 20230701, end: 20230817
  9. HYDROCORTISONE [Concomitant]
     Active Substance: HYDROCORTISONE
     Dosage: 20 MG AT AM, 10 MG AT 12 PM, 10 MG; ONCE A DAY
     Route: 048
     Dates: start: 20230818, end: 20230826
  10. HYDROCORTISONE [Concomitant]
     Active Substance: HYDROCORTISONE
     Dosage: 10 MG AT AM, 5 MG AT 12 PM, 5 MG AT 5 PM ONCE A DAY
     Route: 048
     Dates: start: 20230827, end: 20231205
  11. HYDROCORTISONE [Concomitant]
     Active Substance: HYDROCORTISONE
     Dosage: 7.5 MG AT AM, 5 MG AT 12 PM, 5 MG AT 5 PM; ONCE A DAY
     Route: 048
     Dates: start: 20231206, end: 20231219
  12. HYDROCORTISONE [Concomitant]
     Active Substance: HYDROCORTISONE
     Dosage: UNK, EVERY 1 DAY
     Dates: start: 20231206, end: 20231219
  13. HYDROCORTISONE [Concomitant]
     Active Substance: HYDROCORTISONE
     Dosage: 10 MG AT AM, 5 MG AT 12 PM, 5 MG AT 5 PM ONCE A DAY20 MG AT AM, 10 MG AT 12 PM, 10 MG; ONCE A DAY
     Route: 048
     Dates: start: 20231220, end: 20240102
  14. HYDROCORTISONE [Concomitant]
     Active Substance: HYDROCORTISONE
     Dosage: UNK, EVERY 1 DAY
     Dates: start: 20231220, end: 20240102
  15. HYDROCORTISONE [Concomitant]
     Active Substance: HYDROCORTISONE
     Dosage: 7.5 MG AT AM, 5 MG AT 2 PM, 5 MG AT 5 PM; ONCE A DAY
     Route: 048
     Dates: start: 20240103, end: 20240117
  16. HYDROCORTISONE [Concomitant]
     Active Substance: HYDROCORTISONE
     Dosage: UNK, EVERY 1 DAY
     Dates: start: 20240103, end: 20240117
  17. OMEPRAZOLE [Concomitant]
     Active Substance: OMEPRAZOLE
     Dosage: EVERY 1 DAY
     Dates: start: 202204
  18. ALBUTEROL [Concomitant]
     Active Substance: ALBUTEROL
     Dosage: UNK
     Dates: start: 1979, end: 20240307
  19. WHEY [Concomitant]
     Active Substance: WHEY
     Dosage: ONCE A DAY
     Dates: start: 202211, end: 20240307
  20. DALTEPARIN [Concomitant]
     Active Substance: DALTEPARIN
     Dosage: ONCE A DAY
     Dates: start: 20231219, end: 20240307
  21. DOXYCYCLINE [Concomitant]
     Active Substance: DOXYCYCLINE
     Dosage: ONCE A DAY
     Dates: start: 20231220, end: 20231225
  22. ELOCON [Concomitant]
     Active Substance: MOMETASONE FUROATE
     Dosage: ONCE A DAY
     Dates: start: 20231220
  23. FUROSEMIDE [Concomitant]
     Active Substance: FUROSEMIDE
     Dosage: ONCE A DAY
     Dates: start: 20230624, end: 20240307
  24. PREDNISOLONE [Concomitant]
     Active Substance: PREDNISOLONE
     Dosage: ONCE A DAY
     Dates: start: 20240118, end: 20240123
  25. PREDNISOLONE [Concomitant]
     Active Substance: PREDNISOLONE
     Dosage: ONCE A DAY
     Dates: start: 20240124, end: 20240206
  26. PREDNISOLONE [Concomitant]
     Active Substance: PREDNISOLONE
     Dosage: UNK, EVERY 1 DAY
     Dates: start: 20240207
  27. SODIUM PHOSPHATE [Concomitant]
     Active Substance: SODIUM PHOSPHATE
     Dosage: 2 DF, ONCE A DAY
     Dates: start: 20240102, end: 20240105
  28. RENAPRO [Concomitant]
  29. CLARITHROMYCIN [Concomitant]
     Active Substance: CLARITHROMYCIN
     Dosage: 500 MG, EVERY 0.5 DAY
     Dates: start: 20240227, end: 20240304
  30. AMOXICILLIN\CLAVULANATE POTASSIUM [Concomitant]
     Active Substance: AMOXICILLIN\CLAVULANATE POTASSIUM
     Dosage: 625 MG, EVERY 0.33 DAY
     Dates: start: 20240228, end: 20240306

REACTIONS (4)
  - Death [Fatal]
  - Urinary tract infection [Unknown]
  - Rash [Recovered/Resolved]
  - Intentional product use issue [Unknown]

NARRATIVE: CASE EVENT DATE: 20230808
